FAERS Safety Report 14002605 (Version 1)
Quarter: 2017Q3

REPORT INFORMATION
  Report Type: Spontaneous
  Country: US (occurrence: US)
  Receive Date: 20170922
  Receipt Date: 20170922
  Transmission Date: 20171128
  Serious: No
  Sender: FDA-Public Use
  Company Number: US-AMGEN-USASP2016156267

PATIENT
  Age: 69 Year
  Sex: Male
  Weight: 86.7 kg

DRUGS (10)
  1. NEUPOGEN [Suspect]
     Active Substance: FILGRASTIM
     Indication: HAEMATOPOIETIC STEM CELL MOBILISATION
     Dosage: 900 MUG, UNK
     Route: 065
     Dates: start: 20160902
  2. NEUPOGEN [Suspect]
     Active Substance: FILGRASTIM
     Dosage: 480 MUG, UNK
     Route: 065
     Dates: start: 20161109
  3. NEUPOGEN [Suspect]
     Active Substance: FILGRASTIM
     Dosage: 480 MUG, UNK
     Route: 065
     Dates: start: 20161110
  4. NEUPOGEN [Suspect]
     Active Substance: FILGRASTIM
     Dosage: 900 MUG, UNK
     Route: 065
     Dates: start: 20160905
  5. METHOTREXATE. [Suspect]
     Active Substance: METHOTREXATE
     Indication: PRODUCT USED FOR UNKNOWN INDICATION
     Dosage: UNK UNK, 2 TIMES/WK
     Route: 031
  6. NEUPOGEN [Suspect]
     Active Substance: FILGRASTIM
     Indication: STEM CELL TRANSPLANT
     Dosage: 900 MUG, UNK
     Route: 065
     Dates: start: 20160903
  7. NEUPOGEN [Suspect]
     Active Substance: FILGRASTIM
     Indication: CENTRAL NERVOUS SYSTEM LYMPHOMA
     Dosage: UNK, HIGH DOSE
     Route: 065
  8. NEUPOGEN [Suspect]
     Active Substance: FILGRASTIM
     Dosage: 900 MUG, UNK
     Route: 065
     Dates: start: 20160906
  9. NEUPOGEN [Suspect]
     Active Substance: FILGRASTIM
     Dosage: 900 MUG, UNK
     Route: 065
     Dates: start: 20160904
  10. NEUPOGEN [Suspect]
     Active Substance: FILGRASTIM
     Dosage: 480 MUG, UNK
     Route: 065
     Dates: start: 20161111

REACTIONS (12)
  - Unevaluable event [Unknown]
  - White blood cell count decreased [Unknown]
  - Ocular hyperaemia [Recovered/Resolved]
  - Eye pain [Recovered/Resolved]
  - Visual acuity reduced [Recovered/Resolved]
  - Lip swelling [Recovered/Resolved]
  - Photophobia [Recovered/Resolved]
  - Eye disorder [Recovered/Resolved]
  - Visual impairment [Recovered/Resolved]
  - Vision blurred [Recovered/Resolved]
  - Eye swelling [Recovered/Resolved]
  - Urticaria [Not Recovered/Not Resolved]

NARRATIVE: CASE EVENT DATE: 2016
